FAERS Safety Report 8222157-7 (Version None)
Quarter: 2012Q1

REPORT INFORMATION
  Report Type: 
  Country: None (occurrence: None)
  Receive Date: 20120316
  Receipt Date: 20120306
  Transmission Date: 20120608
  Serious: Yes (Death, Life-Threatening, Hospitalization)
  Sender: FDA-Public Use
  Company Number: 2012SP005449

PATIENT
  Age: 57 Year
  Sex: Female

DRUGS (3)
  1. BOCEPREVIR (SCH-503034) [Suspect]
     Indication: HEPATITIS C
     Dosage: 800 MG; TID
     Dates: start: 20110119, end: 20120130
  2. RIBAVIRIN [Suspect]
     Indication: HEPATITIS C
     Dosage: 400 MG; BID; PO
     Route: 048
     Dates: start: 20110119, end: 20120130
  3. PEG-INTRON [Suspect]
     Indication: HEPATITIS C
     Dosage: 100 MCG; QW; SC
     Route: 058
     Dates: start: 20110119, end: 20120130

REACTIONS (17)
  - PNEUMONIA STAPHYLOCOCCAL [None]
  - STAPHYLOCOCCAL INFECTION [None]
  - METABOLIC ACIDOSIS [None]
  - IMMUNOSUPPRESSION [None]
  - INFECTION SUSCEPTIBILITY INCREASED [None]
  - ASCITES [None]
  - MULTI-ORGAN FAILURE [None]
  - HEPATIC FAILURE [None]
  - ORAL HERPES [None]
  - RESPIRATORY FAILURE [None]
  - LUNG ABSCESS [None]
  - PULMONARY NECROSIS [None]
  - SEPTIC SHOCK [None]
  - RENAL FAILURE [None]
  - INTERNATIONAL NORMALISED RATIO INCREASED [None]
  - HAEMODIALYSIS [None]
  - TREATMENT NONCOMPLIANCE [None]
